FAERS Safety Report 18612709 (Version 1)
Quarter: 2020Q4

REPORT INFORMATION
  Report Type: Spontaneous
  Country: FR (occurrence: FR)
  Receive Date: 20201214
  Receipt Date: 20201214
  Transmission Date: 20210114
  Serious: Yes (Hospitalization)
  Sender: FDA-Public Use
  Company Number: FR-OTSUKA-2020_031088

PATIENT
  Age: 26 Year
  Sex: Male

DRUGS (2)
  1. ARIPIPRAZOLE. [Suspect]
     Active Substance: ARIPIPRAZOLE
     Indication: TOXICITY TO VARIOUS AGENTS
     Dosage: 75 MG, UNK
     Route: 048
  2. SERESTA [Suspect]
     Active Substance: OXAZEPAM
     Indication: TOXICITY TO VARIOUS AGENTS
     Dosage: 510 MG, UNK
     Route: 048

REACTIONS (5)
  - Atonic seizures [Recovered/Resolved]
  - Somnolence [Unknown]
  - Toxicity to various agents [Recovered/Resolved]
  - Product use in unapproved indication [Unknown]
  - Overdose [Unknown]

NARRATIVE: CASE EVENT DATE: 20201106
